FAERS Safety Report 7867963-3 (Version None)
Quarter: 2011Q4

REPORT INFORMATION
  Report Type: 
  Country: None (occurrence: None)
  Receive Date: 20111028
  Receipt Date: 20111019
  Transmission Date: 20120403
  Serious: Yes (Hospitalization, Other)
  Sender: FDA-Public Use
  Company Number: GB-B.I. PHARMACEUTICALS,INC./RIDGEFIELD-2011-UK-00967UK

PATIENT
  Age: 35 Year
  Sex: Male

DRUGS (2)
  1. TRUVADA [Concomitant]
     Indication: HIV INFECTION
     Dosage: 1DF ONCE DAILY
  2. VIRAMUNE [Suspect]
     Indication: HIV INFECTION
     Dosage: 200 MG

REACTIONS (3)
  - CONJUNCTIVITIS [None]
  - STEVENS-JOHNSON SYNDROME [None]
  - LIP BLISTER [None]
